FAERS Safety Report 6330878-6 (Version None)
Quarter: 2009Q3

REPORT INFORMATION
  Report Type: 
  Country: None (occurrence: None)
  Receive Date: 20090827
  Receipt Date: 20090819
  Transmission Date: 20100115
  Serious: Yes (Hospitalization, Other)
  Sender: FDA-Public Use
  Company Number: JP-JNJFOC-20090202652

PATIENT
  Sex: Male
  Weight: 62 kg

DRUGS (7)
  1. REMICADE [Suspect]
     Dosage: 3RD INFUSION
     Route: 042
  2. REMICADE [Suspect]
     Route: 042
  3. REMICADE [Suspect]
     Indication: BEHCET'S SYNDROME
     Route: 042
  4. COLCHICINE [Concomitant]
     Indication: BEHCET'S SYNDROME
     Route: 048
  5. BETAMETHASONE SODIUM PHOSPHATE [Concomitant]
     Indication: BEHCET'S SYNDROME
     Dosage: 6 TIMES A DAY TO LEFT EYE
  6. STEROIDS NOS [Concomitant]
  7. RINDERON [Concomitant]

REACTIONS (6)
  - ANAEMIA [None]
  - DECREASED APPETITE [None]
  - DISSEMINATED TUBERCULOSIS [None]
  - GASTRIC ULCER [None]
  - HEPATIC FUNCTION ABNORMAL [None]
  - THROMBOCYTOPENIA [None]
